FAERS Safety Report 8738988 (Version 2)
Quarter: 2013Q4

REPORT INFORMATION
  Report Type: Spontaneous
  Country: US (occurrence: US)
  Receive Date: 20120823
  Receipt Date: 20131101
  Transmission Date: 20140711
  Serious: No
  Sender: FDA-Public Use
  Company Number: US-009507513-1208USA000101

PATIENT
  Age: 85 Year
  Sex: Female

DRUGS (2)
  1. JANUVIA [Suspect]
     Indication: DIABETES MELLITUS
     Dosage: UNK
     Dates: start: 2010
  2. MACROBID (NITROFURANTOIN) [Concomitant]

REACTIONS (1)
  - Interstitial lung disease [Not Recovered/Not Resolved]
